FAERS Safety Report 8046014-4 (Version None)
Quarter: 2012Q1

REPORT INFORMATION
  Report Type: 
  Country: None (occurrence: None)
  Receive Date: 20120113
  Receipt Date: 20120103
  Transmission Date: 20120608
  Serious: Yes (Hospitalization)
  Sender: FDA-Public Use
  Company Number: US-PFIZER INC-2011302459

PATIENT
  Sex: Male
  Weight: 77.6 kg

DRUGS (4)
  1. CARBOPLATIN [Suspect]
     Indication: HEAD AND NECK CANCER
     Dosage: 502 MG, EVERY 21 DAYS
     Dates: start: 20110902
  2. FLUOROURACIL [Suspect]
     Indication: HEAD AND NECK CANCER
     Dosage: 1940 MG/M2, EVERY 21 DAYS
     Dates: start: 20110902
  3. BLINDED THERAPY [Suspect]
     Indication: HEAD AND NECK CANCER
     Dosage: UNK
     Dates: start: 20110902, end: 20111028
  4. LEXAPRO [Concomitant]
     Indication: DEPRESSION

REACTIONS (1)
  - PNEUMONIA [None]
